FAERS Safety Report 5924110-2 (Version None)
Quarter: 2008Q4

REPORT INFORMATION
  Report Type: 
  Country: None (occurrence: None)
  Receive Date: 20081020
  Receipt Date: 20081007
  Transmission Date: 20090506
  Serious: Yes (Hospitalization)
  Sender: FDA-Public Use
  Company Number: PHHO2008AU11089

PATIENT
  Sex: Male
  Weight: 57 kg

DRUGS (10)
  1. NEORAL [Suspect]
     Indication: RENAL TRANSPLANT
     Dosage: 100 MG, BID
     Route: 048
     Dates: start: 20070714, end: 20080724
  2. NEORAL [Suspect]
     Dosage: 150 MG, BID
     Route: 048
     Dates: start: 20080725, end: 20080730
  3. NEORAL [Suspect]
     Dosage: 175 MG, BID
     Route: 048
     Dates: start: 20080731, end: 20080825
  4. NO TREATMENT RECEIVED NOMED [Suspect]
     Dosage: UNK
  5. THYMOGLOBULIN [Suspect]
     Dosage: 100 MG
     Dates: start: 20080911, end: 20080912
  6. THYMOGLOBULIN [Suspect]
     Dosage: 125 MG
     Dates: start: 20080914, end: 20080917
  7. THYMOGLOBULIN [Suspect]
     Dosage: 100 MG
     Dates: start: 20080918, end: 20080918
  8. THYMOGLOBULIN [Suspect]
     Dosage: 75 MG
     Dates: start: 20080919, end: 20080921
  9. TACROLIMUS [Concomitant]
     Dosage: 6.5 MG, BID
     Route: 048
     Dates: start: 20080826, end: 20080922
  10. TACROLIMUS [Concomitant]
     Dosage: 7.5 MG, BID
     Route: 048
     Dates: start: 20080923

REACTIONS (6)
  - COUGH [None]
  - DRUG INEFFECTIVE [None]
  - HEADACHE [None]
  - HYPOTENSION [None]
  - KIDNEY TRANSPLANT REJECTION [None]
  - TACHYCARDIA [None]
